FAERS Safety Report 15765747 (Version 2)
Quarter: 2019Q2

REPORT INFORMATION
  Report Type: Spontaneous
  Country: US (occurrence: US)
  Receive Date: 20181227
  Receipt Date: 20190509
  Transmission Date: 20190711
  Serious: Yes (Other)
  Sender: FDA-Public Use
  Company Number: US-SA-2018SA388815

PATIENT
  Age: 60 Year
  Sex: Female
  Weight: 68 kg

DRUGS (13)
  1. TAXOTERE [Suspect]
     Active Substance: DOCETAXEL
     Dosage: UNK
     Route: 042
     Dates: start: 20140306, end: 20140306
  2. CYCLOPHOSPHAMIDE. [Concomitant]
     Active Substance: CYCLOPHOSPHAMIDE
  3. ANASTROZOLE. [Concomitant]
     Active Substance: ANASTROZOLE
  4. BASAGLAR [Concomitant]
     Active Substance: INSULIN GLARGINE
  5. VITAMIN D3 [Concomitant]
     Active Substance: CHOLECALCIFEROL
  6. EZETIMIBE. [Concomitant]
     Active Substance: EZETIMIBE
  7. ASPIRIN [ACETYLSALICYLIC ACID] [Concomitant]
     Active Substance: ASPIRIN
  8. NEOSAR [Concomitant]
     Active Substance: CYCLOPHOSPHAMIDE
  9. VICTOZA [Concomitant]
     Active Substance: LIRAGLUTIDE
  10. TAXOTERE [Suspect]
     Active Substance: DOCETAXEL
     Indication: BREAST CANCER FEMALE
     Dosage: UNK UNK, UNK
     Route: 042
     Dates: start: 20130101, end: 20130101
  11. LOSARTAN. [Concomitant]
     Active Substance: LOSARTAN
  12. SIMVASTATIN. [Concomitant]
     Active Substance: SIMVASTATIN
  13. POTASSIUM [Concomitant]
     Active Substance: POTASSIUM

REACTIONS (3)
  - Alopecia [Recovering/Resolving]
  - Emotional distress [Unknown]
  - Psychological trauma [Unknown]

NARRATIVE: CASE EVENT DATE: 2013
